FAERS Safety Report 5357848-9 (Version None)
Quarter: 2007Q2

REPORT INFORMATION
  Report Type: 
  Country: None (occurrence: None)
  Receive Date: 20070530
  Receipt Date: 20070117
  Transmission Date: 20071010
  Serious: Yes (Other)
  Sender: FDA-Public Use
  Company Number: US200701003721

PATIENT
  Age: 44 Year
  Sex: Male
  Weight: 136.1 kg

DRUGS (1)
  1. ZYPREXA [Suspect]
     Dosage: 10 MG, EACH EVENING, ORAL
     Route: 048
     Dates: start: 20020101

REACTIONS (1)
  - WEIGHT INCREASED [None]
